FAERS Safety Report 26026268 (Version 1)
Quarter: 2025Q4

REPORT INFORMATION
  Report Type: Spontaneous
  Country: CN (occurrence: CN)
  Receive Date: 20251111
  Receipt Date: 20251111
  Transmission Date: 20260117
  Serious: Yes (Life-Threatening)
  Sender: BRACCO
  Company Number: CN-BRACCO-2025CN07686

PATIENT
  Age: 49 Year
  Sex: Female

DRUGS (1)
  1. IOMEPROL [Suspect]
     Active Substance: IOMEPROL
     Indication: Computerised tomogram heart
     Dosage: 100 ML, SINGLE
     Route: 042
     Dates: start: 20251022, end: 20251022

REACTIONS (5)
  - Palpitations [Recovering/Resolving]
  - Dizziness [Recovering/Resolving]
  - Hypoaesthesia [Recovering/Resolving]
  - Muscle spasms [Recovering/Resolving]
  - Abdominal pain [Recovering/Resolving]

NARRATIVE: CASE EVENT DATE: 20251022
